FAERS Safety Report 8540608-5 (Version None)
Quarter: 2012Q3

REPORT INFORMATION
  Report Type: 
  Country: None (occurrence: None)
  Receive Date: 20120726
  Receipt Date: 20120724
  Transmission Date: 20120928
  Serious: Yes (Death)
  Sender: FDA-Public Use
  Company Number: US-CELGENEUS-163-21880-12070137

PATIENT
  Sex: Male

DRUGS (5)
  1. NORCO [Concomitant]
     Dosage: 5/325MG
     Route: 048
  2. REVLIMID [Suspect]
     Dosage: 5 MILLIGRAM
     Route: 048
     Dates: start: 20120531, end: 20120613
  3. ACYCLOVIR [Concomitant]
     Dosage: 800 MILLIGRAM
     Route: 048
  4. DAPSONE [Concomitant]
     Dosage: 100 MILLIGRAM
     Route: 048
  5. SERTRALINE HYDROCHLORIDE [Concomitant]
     Dosage: 100 MILLIGRAM
     Route: 048

REACTIONS (1)
  - CHRONIC LYMPHOCYTIC LEUKAEMIA [None]
